FAERS Safety Report 4984819-4 (Version None)
Quarter: 2006Q2

REPORT INFORMATION
  Report Type: 
  Country: None (occurrence: None)
  Receive Date: 20060427
  Receipt Date: 20060418
  Transmission Date: 20061013
  Serious: Yes (Other)
  Sender: FDA-Public Use
  Company Number: CA-SANOFI-SYNTHELABO-A01200603158

PATIENT
  Sex: Male

DRUGS (1)
  1. ELIGARD [Suspect]
     Route: 058
     Dates: start: 20060123, end: 20060123

REACTIONS (1)
  - INJECTION SITE NECROSIS [None]
